FAERS Safety Report 25932317 (Version 2)
Quarter: 2025Q4

REPORT INFORMATION
  Report Type: Spontaneous
  Country: US (occurrence: US)
  Receive Date: 20251016
  Receipt Date: 20251024
  Transmission Date: 20260118
  Serious: No
  Sender: ABBVIE
  Company Number: US-ABBVIE-6505767

PATIENT
  Sex: Female

DRUGS (2)
  1. ARMOUR THYROID [Suspect]
     Active Substance: THYROID, PORCINE
     Indication: Hypothyroidism
     Dosage: 82.5 MILLIGRAM?FORM STRENGTH: 82.5  MILLIGRAM?FREQUENCY TEXT: UNKNOWN
     Route: 048
     Dates: start: 202507
  2. ARMOUR THYROID [Suspect]
     Active Substance: THYROID, PORCINE
     Indication: Hypothyroidism
     Dosage: 75 MILLIGRAM?ARMOUR THYROID 60 MG?FORM STRENGTH: 75  MILLIGRAM?FREQUENCY TEXT: UNKNOWN
     Route: 048
     Dates: start: 2012, end: 202507

REACTIONS (9)
  - Laboratory test abnormal [Unknown]
  - Toothache [Unknown]
  - Cardiac discomfort [Unknown]
  - Feeling hot [Recovered/Resolved]
  - Dyspnoea [Unknown]
  - Dizziness [Unknown]
  - Wrong technique in product usage process [Unknown]
  - Product size issue [Unknown]
  - Muscle tightness [Unknown]
